FAERS Safety Report 8816507 (Version 1)
Quarter: 2012Q4

REPORT INFORMATION
  Report Type: Spontaneous
  Country: DK (occurrence: None)
  Receive Date: 20120927
  Receipt Date: 20120927
  Transmission Date: 20130627
  Serious: Yes (Death, Hospitalization)
  Sender: FDA-Public Use
  Company Number: 2012MA011538

PATIENT
  Age: 69 Year
  Sex: Female

DRUGS (1)
  1. METFORMIN HYDROCHLORIDE [Suspect]
     Indication: DRUG USE FOR UNKNOWN INDICATION
     Route: 048

REACTIONS (6)
  - Lactic acidosis [None]
  - Staphylococcal sepsis [None]
  - Renal failure acute [None]
  - Haemodialysis [None]
  - Drug level increased [None]
  - Platelet count decreased [None]
